FAERS Safety Report 19799361 (Version 12)
Quarter: 2022Q2

REPORT INFORMATION
  Report Type: Report from Study
  Country: US (occurrence: US)
  Receive Date: 20210907
  Receipt Date: 20220507
  Transmission Date: 20220721
  Serious: Yes (Hospitalization, Disabling, Other)
  Sender: FDA-Public Use
  Company Number: US-NOVARTISPH-NVSC2021US202052

PATIENT
  Age: 61 Year
  Sex: Female

DRUGS (3)
  1. ENTRESTO [Suspect]
     Active Substance: SACUBITRIL\VALSARTAN
     Indication: Product used for unknown indication
     Dosage: 50 MG, BID
     Route: 065
  2. ENTRESTO [Suspect]
     Active Substance: SACUBITRIL\VALSARTAN
     Dosage: 50 MG, BID (24/26 MG)
     Route: 065
  3. ENTRESTO [Suspect]
     Active Substance: SACUBITRIL\VALSARTAN
     Dosage: 50 MG, BID (24/26 MG)
     Route: 048
     Dates: start: 202108

REACTIONS (19)
  - Angiopathy [Unknown]
  - Muscle disorder [Recovering/Resolving]
  - Urinary incontinence [Recovering/Resolving]
  - Gout [Unknown]
  - Pain [Unknown]
  - Anal incontinence [Recovering/Resolving]
  - Asthenia [Unknown]
  - Clostridium difficile infection [Unknown]
  - Pleural effusion [Unknown]
  - Carotid artery disease [Unknown]
  - Ejection fraction decreased [Unknown]
  - Thinking abnormal [Unknown]
  - Urinary tract infection [Unknown]
  - Malaise [Unknown]
  - Memory impairment [Unknown]
  - Cardiac disorder [Unknown]
  - Restlessness [Unknown]
  - Hypoacusis [Unknown]
  - Fatigue [Unknown]

NARRATIVE: CASE EVENT DATE: 20220101
